FAERS Safety Report 5418320-0 (Version None)
Quarter: 2007Q3

REPORT INFORMATION
  Report Type: 
  Country: None (occurrence: None)
  Receive Date: 20070817
  Receipt Date: 20070808
  Transmission Date: 20080115
  Serious: Yes (Hospitalization)
  Sender: FDA-Public Use
  Company Number: US-ROCHE-431022

PATIENT
  Age: 48 Year
  Sex: Male
  Weight: 107 kg

DRUGS (7)
  1. PEG-INTERFERON A-2A (RO 25-8310) [Suspect]
     Route: 058
     Dates: start: 20051025
  2. RIBAVIRIN [Suspect]
     Route: 048
     Dates: start: 20051025
  3. OXYCONTIN [Concomitant]
     Dosage: TAKEN AS OCCASION REQUIRES
  4. SOMA [Concomitant]
     Dosage: TAKEN AS OCCASION REQUIRES
  5. ASPIRIN [Concomitant]
     Dosage: TAKEN DAILY
     Dates: start: 20050701
  6. NAPROXEN [Concomitant]
     Dosage: TAKEN AS OCCASION REQUIRES
     Dates: start: 20051023
  7. LORTAB [Concomitant]
     Dosage: DRUG REPORTED AS LORTAB (VICODIN).
     Dates: start: 20051205

REACTIONS (1)
  - CONVULSION [None]
